FAERS Safety Report 7025858-1 (Version None)
Quarter: 2010Q4

REPORT INFORMATION
  Report Type: 
  Country: None (occurrence: None)
  Receive Date: 20101004
  Receipt Date: 20100818
  Transmission Date: 20110411
  Serious: No
  Sender: FDA-Public Use
  Company Number: US-BIOGENIDEC-2010BI026782

PATIENT
  Sex: Male

DRUGS (1)
  1. TYSABRI [Suspect]
     Indication: MULTIPLE SCLEROSIS
     Route: 042
     Dates: start: 20080922

REACTIONS (4)
  - BALANCE DISORDER [None]
  - MUSCULAR WEAKNESS [None]
  - POLLAKIURIA [None]
  - URINARY TRACT INFECTION [None]
